FAERS Safety Report 12955070 (Version 1)
Quarter: 2016Q4

REPORT INFORMATION
  Report Type: Spontaneous
  Country: CN (occurrence: CN)
  Receive Date: 20161118
  Receipt Date: 20161118
  Transmission Date: 20170207
  Serious: Yes (Other)
  Sender: FDA-Public Use
  Company Number: CN-BAYER-2016-215285

PATIENT
  Sex: Female
  Weight: 24 kg

DRUGS (1)
  1. KOGENATE FS [Suspect]
     Active Substance: ANTIHEMOPHILIC FACTOR, HUMAN RECOMBINANT
     Indication: PROPHYLAXIS
     Dosage: TWICE FOR A WEEK, AND 250IU ONCE
     Dates: start: 2012

REACTIONS (3)
  - Drug effect decreased [None]
  - Haemorrhage [None]
  - Product quality issue [None]
